FAERS Safety Report 8896480 (Version 1)
Quarter: 2012Q4

REPORT INFORMATION
  Report Type: Spontaneous
  Country: US (occurrence: None)
  Receive Date: 20121107
  Receipt Date: 20121107
  Transmission Date: 20130627
  Serious: Yes (Life-Threatening, Hospitalization)
  Sender: FDA-Public Use
  Company Number: None

PATIENT
  Age: 74 Year
  Sex: Female

DRUGS (2)
  1. HYDROMORPHONE [Suspect]
     Indication: PAIN
     Dosage: 1mg  once  IV
     Route: 042
     Dates: start: 20121007, end: 20121007
  2. HYDROMORPHONE [Suspect]
     Indication: PAIN
     Dosage: 4mg  once  po
     Route: 048
     Dates: start: 20121013, end: 20121013

REACTIONS (2)
  - Sedation [None]
  - Respiratory depression [None]
